FAERS Safety Report 10964289 (Version 2)
Quarter: 2015Q2

REPORT INFORMATION
  Report Type: Spontaneous
  Country: US (occurrence: US)
  Receive Date: 20150329
  Receipt Date: 20150524
  Transmission Date: 20150821
  Serious: Yes (Other)
  Sender: FDA-Public Use
  Company Number: US-JNJFOC-20130813838

PATIENT
  Sex: Female
  Weight: 90.72 kg

DRUGS (3)
  1. FENTANYL TRANSDERMAL SYSTEM [Suspect]
     Active Substance: FENTANYL
     Indication: MYASTHENIA GRAVIS
     Route: 062
  2. DURAGESIC [Suspect]
     Active Substance: FENTANYL
     Indication: MYASTHENIA GRAVIS
     Route: 062
  3. DURAGESIC [Suspect]
     Active Substance: FENTANYL
     Indication: MYASTHENIA GRAVIS
     Route: 062

REACTIONS (2)
  - Rash pruritic [Recovered/Resolved]
  - Drug dependence [Unknown]
